FAERS Safety Report 4507683-6 (Version None)
Quarter: 2004Q4

REPORT INFORMATION
  Report Type: 
  Country: None (occurrence: None)
  Receive Date: 20041122
  Receipt Date: 20041105
  Transmission Date: 20050328
  Serious: No
  Sender: FDA-Public Use
  Company Number: 2004AL001317

PATIENT
  Age: 5 Month
  Sex: Female

DRUGS (1)
  1. METOCLOPRAMIDE ORAL SOLUTION USP, EQ. 5 MG BASE/5 ML (ALPHARMA) [Suspect]
     Indication: GASTROOESOPHAGEAL REFLUX DISEASE
     Dosage: 5 ML;X1;PO
     Route: 048
     Dates: start: 20040928, end: 20040929

REACTIONS (7)
  - CONVULSION [None]
  - CRYING [None]
  - DYSTONIA [None]
  - HYPERSENSITIVITY [None]
  - PALLOR [None]
  - RESPIRATORY RATE DECREASED [None]
  - VISION BLURRED [None]
